FAERS Safety Report 24269130 (Version 1)
Quarter: 2024Q3

REPORT INFORMATION
  Report Type: Spontaneous
  Country: CN (occurrence: CN)
  Receive Date: 20240830
  Receipt Date: 20240830
  Transmission Date: 20241016
  Serious: Yes (Other)
  Sender: ABBVIE
  Company Number: CN-ABBVIE-5890905

PATIENT
  Age: 69 Year
  Sex: Female

DRUGS (8)
  1. BRIMONIDINE TARTRATE [Suspect]
     Active Substance: BRIMONIDINE TARTRATE
     Indication: Intraocular pressure increased
     Dosage: 0.1 MILLILITER
     Route: 047
     Dates: start: 20240724, end: 20240726
  2. POTASSIUM CHLORIDE EXTENDED RELEASE [Concomitant]
     Active Substance: POTASSIUM CHLORIDE
     Indication: Electrolyte substitution therapy
     Dosage: 1 GRAM, SUSTAINED-RELEASE TABLETS
     Route: 048
     Dates: start: 20240724, end: 20240726
  3. SODIUM BICARBONATE [Concomitant]
     Active Substance: SODIUM BICARBONATE
     Indication: Electrolyte substitution therapy
     Dosage: 1 GRAM
     Route: 048
     Dates: start: 20240724, end: 20240726
  4. METHAZOLAMIDE [Concomitant]
     Active Substance: METHAZOLAMIDE
     Indication: Intraocular pressure increased
     Dosage: 50 MILLIGRAM
     Route: 048
     Dates: start: 20240724, end: 20240726
  5. BRINZOLAMIDE\TIMOLOL MALEATE [Concomitant]
     Active Substance: BRINZOLAMIDE\TIMOLOL MALEATE
     Indication: Intraocular pressure increased
     Dosage: 0.1 MILLILITER? EYE DROPS
     Route: 047
     Dates: start: 20240725, end: 20240817
  6. TAFLUPROST [Concomitant]
     Active Substance: TAFLUPROST
     Indication: Intraocular pressure increased
     Dosage: 0.05 MILLILITER? EYE DROPS, EVERY NIGHT
     Route: 047
     Dates: start: 20240725, end: 20240817
  7. WARFARIN [Concomitant]
     Active Substance: WARFARIN
     Indication: Product used for unknown indication
  8. DIGOXIN [Concomitant]
     Active Substance: DIGOXIN
     Indication: Product used for unknown indication

REACTIONS (4)
  - Tinnitus [Recovered/Resolved]
  - Vertigo [Recovered/Resolved]
  - Muscular weakness [Recovered/Resolved]
  - Loss of consciousness [Recovered/Resolved]

NARRATIVE: CASE EVENT DATE: 20240726
